FAERS Safety Report 16321170 (Version 8)
Quarter: 2020Q2

REPORT INFORMATION
  Report Type: Spontaneous
  Country: JP (occurrence: JP)
  Receive Date: 20190516
  Receipt Date: 20200402
  Transmission Date: 20200713
  Serious: Yes (Hospitalization, Disabling, Other)
  Sender: FDA-Public Use
  Company Number: JP-BRISTOL-MYERS SQUIBB COMPANY-BMS-2019-047042

PATIENT
  Age: 72 Year
  Sex: Male
  Weight: 47 kg

DRUGS (2)
  1. ZOLEDRONIC ACID [Concomitant]
     Active Substance: ZOLEDRONIC ACID
     Indication: HYPERCALCAEMIA
     Dosage: 4 MILLIGRAM
     Route: 041
     Dates: start: 20190116, end: 20190116
  2. OPDIVO [Suspect]
     Active Substance: NIVOLUMAB
     Indication: NON-SMALL CELL LUNG CANCER RECURRENT
     Dosage: 240 MILLIGRAM
     Route: 041
     Dates: start: 20190109, end: 20190109

REACTIONS (2)
  - Cardiac failure congestive [Recovering/Resolving]
  - Glomerulonephritis rapidly progressive [Recovered/Resolved with Sequelae]

NARRATIVE: CASE EVENT DATE: 20190123
